FAERS Safety Report 19498451 (Version 1)
Quarter: 2021Q3

REPORT INFORMATION
  Report Type: Spontaneous
  Country: AT (occurrence: AT)
  Receive Date: 20210706
  Receipt Date: 20210706
  Transmission Date: 20211014
  Serious: Yes (Other)
  Sender: FDA-Public Use
  Company Number: NVSC2021AT145548

PATIENT
  Age: 34 Year
  Sex: Male
  Weight: 89.5 kg

DRUGS (10)
  1. QUILONORM [Suspect]
     Active Substance: LITHIUM
     Indication: PRODUCT USED FOR UNKNOWN INDICATION
     Dosage: 225 MG
     Route: 065
     Dates: start: 20210212, end: 20210217
  2. QUILONORM [Suspect]
     Active Substance: LITHIUM
     Dosage: 675 MG
     Route: 065
     Dates: start: 20210225, end: 20210301
  3. ANAFRANIL [Suspect]
     Active Substance: CLOMIPRAMINE HYDROCHLORIDE
     Indication: PRODUCT USED FOR UNKNOWN INDICATION
     Dosage: 75 MG
     Route: 065
     Dates: start: 20210129, end: 20210325
  4. QUILONORM [Suspect]
     Active Substance: LITHIUM
     Dosage: 900 MG
     Route: 065
     Dates: start: 20210302, end: 20210306
  5. RIVOTRIL [Concomitant]
     Active Substance: CLONAZEPAM
     Indication: PRODUCT USED FOR UNKNOWN INDICATION
     Dosage: 1.5 MG
     Route: 065
     Dates: start: 20210104, end: 20210317
  6. RIVOTRIL [Concomitant]
     Active Substance: CLONAZEPAM
     Dosage: 1 MG
     Route: 065
     Dates: start: 20210318, end: 20210325
  7. TRITTICO [Suspect]
     Active Substance: TRAZODONE HYDROCHLORIDE
     Indication: PRODUCT USED FOR UNKNOWN INDICATION
     Dosage: 150 MG
     Route: 065
     Dates: start: 20210104, end: 20210325
  8. QUETIAPINE. [Suspect]
     Active Substance: QUETIAPINE
     Dosage: 200 MG
     Route: 065
     Dates: start: 20210219, end: 20210317
  9. QUETIAPINE. [Suspect]
     Active Substance: QUETIAPINE
     Indication: PRODUCT USED FOR UNKNOWN INDICATION
     Dosage: 150 MG
     Route: 065
     Dates: start: 20210217, end: 20210218
  10. QUILONORM [Suspect]
     Active Substance: LITHIUM
     Dosage: 450 MG
     Route: 065
     Dates: start: 20210218, end: 20210224

REACTIONS (1)
  - Hypertension [Recovered/Resolved]

NARRATIVE: CASE EVENT DATE: 20210305
